APPROVED DRUG PRODUCT: SAPROPTERIN DIHYDROCHLORIDE
Active Ingredient: SAPROPTERIN DIHYDROCHLORIDE
Strength: 500MG/PACKET
Dosage Form/Route: POWDER;ORAL
Application: A216432 | Product #002 | TE Code: AB
Applicant: TP ANDA HOLDINGS LLC
Approved: Sep 3, 2025 | RLD: No | RS: No | Type: RX